FAERS Safety Report 15429843 (Version 1)
Quarter: 2018Q3

REPORT INFORMATION
  Report Type: Report from Study
  Country: US (occurrence: US)
  Receive Date: 20180926
  Receipt Date: 20180926
  Transmission Date: 20181010
  Serious: No
  Sender: FDA-Public Use
  Company Number: US-IPSEN BIOPHARMACEUTICALS, INC.-2017-08031

PATIENT
  Age: 5 Year
  Sex: Male

DRUGS (3)
  1. DESMOPRESSIN [Concomitant]
     Active Substance: DESMOPRESSIN
     Dosage: LID (0.05 MG)
  2. NUTROPIN AQ [Suspect]
     Active Substance: SOMATROPIN
     Indication: HYPOPITUITARISM
     Route: 058
  3. LEVOTHYROXINE. [Concomitant]
     Active Substance: LEVOTHYROXINE
     Route: 048

REACTIONS (9)
  - Weight increased [Unknown]
  - Headache [Unknown]
  - Blood testosterone increased [Unknown]
  - Blood glucose increased [Unknown]
  - Ill-defined disorder [Unknown]
  - Diarrhoea [Unknown]
  - Adipomastia [Unknown]
  - Implant site pruritus [Unknown]
  - Micturition disorder [Unknown]

NARRATIVE: CASE EVENT DATE: 20161007
